FAERS Safety Report 19717417 (Version 14)
Quarter: 2024Q4

REPORT INFORMATION
  Report Type: Report from Study
  Country: CA (occurrence: CA)
  Receive Date: 20210818
  Receipt Date: 20241011
  Transmission Date: 20250115
  Serious: Yes (Other)
  Sender: ROCHE
  Company Number: CA-ROCHE-2889511

PATIENT
  Age: 42 Year
  Sex: Male

DRUGS (3)
  1. OCREVUS [Suspect]
     Active Substance: OCRELIZUMAB
     Indication: Relapsing-remitting multiple sclerosis
     Dosage: 300 MG AT DAY 0 AND 14, THEN 600 MG EVERY 6 MONTH
     Route: 042
     Dates: start: 20200303
  2. OCREVUS [Suspect]
     Active Substance: OCRELIZUMAB
     Dosage: THEN 600 MG EVERY 6 MONTH
     Route: 042
     Dates: start: 20231205
  3. DALFAMPRIDINE [Concomitant]
     Active Substance: DALFAMPRIDINE

REACTIONS (11)
  - SARS-CoV-2 test positive [Recovering/Resolving]
  - Paraesthesia [Not Recovered/Not Resolved]
  - Sensory disturbance [Unknown]
  - Multiple sclerosis [Unknown]
  - Gait disturbance [Not Recovered/Not Resolved]
  - Mobility decreased [Unknown]
  - Fall [Unknown]
  - Anxiety [Not Recovered/Not Resolved]
  - Rib fracture [Recovered/Resolved]
  - Fatigue [Not Recovered/Not Resolved]
  - Asthenia [Not Recovered/Not Resolved]

NARRATIVE: CASE EVENT DATE: 20210511
